FAERS Safety Report 9565277 (Version 1)
Quarter: 2013Q3

REPORT INFORMATION
  Report Type: Report from Study
  Country: JP (occurrence: JP)
  Receive Date: 20130930
  Receipt Date: 20130930
  Transmission Date: 20140515
  Serious: Yes (Hospitalization, Other)
  Sender: FDA-Public Use
  Company Number: JP-TAKEDA-2013TJP001265

PATIENT
  Age: 66 Year
  Sex: Male

DRUGS (4)
  1. LANSOPRAZOLE [Suspect]
     Indication: PROPHYLAXIS AGAINST GASTROINTESTINAL ULCER
     Dosage: 15 MG, UNK
     Route: 048
     Dates: start: 20120918, end: 20121029
  2. BLOPRESS [Concomitant]
     Route: 048
  3. BUFFERIN A [Concomitant]
     Indication: THROMBOSIS PROPHYLAXIS
     Route: 048
  4. SERMION                            /00396401/ [Concomitant]
     Indication: MYOCARDIAL INFARCTION
     Route: 048

REACTIONS (2)
  - Cerebellar infarction [Unknown]
  - Pneumonia aspiration [Unknown]
